FAERS Safety Report 6771956-7 (Version None)
Quarter: 2010Q2

REPORT INFORMATION
  Report Type: 
  Country: None (occurrence: None)
  Receive Date: 20100616
  Receipt Date: 20100226
  Transmission Date: 20101027
  Serious: No
  Sender: FDA-Public Use
  Company Number: US-ASTRAZENECA-2010SE08650

PATIENT
  Age: 39 Year
  Sex: Female

DRUGS (1)
  1. RHINOCORT [Suspect]
     Indication: EAR INFECTION
     Dosage: 128 MCG DAILY
     Route: 045
     Dates: start: 20100203

REACTIONS (4)
  - DRUG INEFFECTIVE [None]
  - EXPIRED DRUG ADMINISTERED [None]
  - FACIAL PALSY [None]
  - PARAESTHESIA [None]
